FAERS Safety Report 8861768 (Version 1)
Quarter: 2012Q4

REPORT INFORMATION
  Report Type: Spontaneous
  Country: US (occurrence: None)
  Receive Date: 20121025
  Receipt Date: 20121025
  Transmission Date: 20130627
  Serious: No
  Sender: FDA-Public Use
  Company Number: None

PATIENT
  Age: 58 Year
  Sex: Female
  Weight: 91.5 kg

DRUGS (1)
  1. DENOSUMAB [Suspect]
     Indication: CANCER
     Dosage: 120 MG ONCE SQ
     Route: 058
     Dates: start: 20120419, end: 20120720

REACTIONS (4)
  - Rash [None]
  - Xerosis [None]
  - Urticaria [None]
  - Pruritus [None]
